FAERS Safety Report 23629259 (Version 1)
Quarter: 2024Q1

REPORT INFORMATION
  Report Type: Spontaneous
  Country: CH (occurrence: CH)
  Receive Date: 20240313
  Receipt Date: 20240313
  Transmission Date: 20240410
  Serious: Yes (Death, Disabling, Other)
  Sender: FDA-Public Use
  Company Number: None

PATIENT
  Age: 67 Year
  Sex: Female
  Weight: 50 kg

DRUGS (2)
  1. KEYTRUDA [Suspect]
     Active Substance: PEMBROLIZUMAB
     Dosage: FIRST INJECTION
     Route: 042
     Dates: start: 20231113
  2. KEYTRUDA [Suspect]
     Active Substance: PEMBROLIZUMAB
     Dosage: SECOND INJECTION
     Route: 042
     Dates: start: 20231201

REACTIONS (1)
  - Autoimmune haemolytic anaemia [Fatal]

NARRATIVE: CASE EVENT DATE: 20240117
